FAERS Safety Report 24888020 (Version 1)
Quarter: 2025Q1

REPORT INFORMATION
  Report Type: Spontaneous
  Country: CA (occurrence: CA)
  Receive Date: 20250127
  Receipt Date: 20250127
  Transmission Date: 20250409
  Serious: Yes (Other)
  Sender: CSL BEHRING
  Company Number: CA-BEH-2025192506

PATIENT
  Age: 16 Year
  Sex: Female

DRUGS (1)
  1. FIBRINOGEN HUMAN [Suspect]
     Active Substance: FIBRINOGEN HUMAN
     Indication: Product used for unknown indication
     Route: 061

REACTIONS (6)
  - Chills [Unknown]
  - Hypertension [Unknown]
  - Pneumomediastinum [Unknown]
  - Pneumothorax [Unknown]
  - Pyrexia [Unknown]
  - Tachycardia [Unknown]
